FAERS Safety Report 6783415-6 (Version None)
Quarter: 2010Q2

REPORT INFORMATION
  Report Type: 
  Country: None (occurrence: None)
  Receive Date: 20100622
  Receipt Date: 20100615
  Transmission Date: 20101027
  Serious: Yes (Hospitalization)
  Sender: FDA-Public Use
  Company Number: CA-ASTRAZENECA-2010SE23938

PATIENT
  Age: 84 Year
  Sex: Female

DRUGS (11)
  1. CRESTOR [Suspect]
     Route: 048
     Dates: start: 20030101
  2. MONOCOR [Concomitant]
  3. ALTACE [Concomitant]
  4. LASIX [Concomitant]
  5. EZETROL [Concomitant]
  6. NEXIUM [Concomitant]
  7. MOTILIUM [Concomitant]
  8. ASPIRIN [Concomitant]
  9. FERROUS SULFATE TAB [Concomitant]
  10. CALCITE [Concomitant]
  11. SERAX [Concomitant]

REACTIONS (8)
  - ARTHRALGIA [None]
  - DIARRHOEA [None]
  - FALL [None]
  - NEUTROPHILIA [None]
  - RENAL IMPAIRMENT [None]
  - RHABDOMYOLYSIS [None]
  - THROMBOCYTOPENIA [None]
  - UROSEPSIS [None]
